FAERS Safety Report 6087975-2 (Version None)
Quarter: 2009Q1

REPORT INFORMATION
  Report Type: 
  Country: None (occurrence: None)
  Receive Date: 20090219
  Receipt Date: 20090211
  Transmission Date: 20090719
  Serious: Yes (Death)
  Sender: FDA-Public Use
  Company Number: 2009AL000844

PATIENT
  Age: 32 Year

DRUGS (1)
  1. DIGOXIN [Suspect]
     Dosage: PO
     Route: 048
     Dates: start: 20070210, end: 20080210

REACTIONS (3)
  - ARRHYTHMIA [None]
  - CARDIOMYOPATHY [None]
  - INJURY [None]
